FAERS Safety Report 9392821 (Version 2)
Quarter: 2013Q3

REPORT INFORMATION
  Report Type: Report from Study
  Country: AR (occurrence: AR)
  Receive Date: 20130710
  Receipt Date: 20130726
  Transmission Date: 20140515
  Serious: Yes (Other)
  Sender: FDA-Public Use
  Company Number: AR-ROCHE-1247012

PATIENT
  Sex: Male

DRUGS (1)
  1. RANIBIZUMAB [Suspect]
     Indication: DIABETIC RETINOPATHY
     Route: 050
     Dates: start: 2012

REACTIONS (3)
  - Blindness unilateral [Unknown]
  - Eye discharge [Recovering/Resolving]
  - Ulcer [Unknown]
